FAERS Safety Report 6763062-2 (Version None)
Quarter: 2010Q2

REPORT INFORMATION
  Report Type: 
  Country: None (occurrence: None)
  Receive Date: 20100609
  Receipt Date: 20100528
  Transmission Date: 20101027
  Serious: Yes (Death)
  Sender: FDA-Public Use
  Company Number: PHHY2010MX26309

PATIENT
  Sex: Male

DRUGS (1)
  1. ZOMETA [Suspect]
     Indication: MALIGNANT MELANOMA
     Dosage: 4MG/ 5ML PER MONTH
     Route: 042
     Dates: start: 20071101, end: 20080101

REACTIONS (3)
  - MALIGNANT NEOPLASM PROGRESSION [None]
  - METASTASES TO CENTRAL NERVOUS SYSTEM [None]
  - SPINAL DISORDER [None]
